FAERS Safety Report 6867710-8 (Version None)
Quarter: 2010Q3

REPORT INFORMATION
  Report Type: 
  Country: None (occurrence: None)
  Receive Date: 20100722
  Receipt Date: 20100603
  Transmission Date: 20110219
  Serious: No
  Sender: FDA-Public Use
  Company Number: US-BAUSCH-2010BL002972

PATIENT
  Age: 26 Year
  Sex: Male
  Weight: 102 kg

DRUGS (4)
  1. OPCON-A [Suspect]
     Indication: OCULAR HYPERAEMIA
     Route: 047
     Dates: start: 20100603, end: 20100603
  2. OPCON-A [Suspect]
     Indication: DRY EYE
     Route: 047
     Dates: start: 20100603, end: 20100603
  3. OPCON-A [Suspect]
     Route: 047
     Dates: start: 20100603, end: 20100603
  4. OPCON-A [Suspect]
     Route: 047
     Dates: start: 20100603, end: 20100603

REACTIONS (4)
  - EYE IRRITATION [None]
  - INCORRECT DOSE ADMINISTERED [None]
  - MYDRIASIS [None]
  - VISION BLURRED [None]
